FAERS Safety Report 7168255-0 (Version None)
Quarter: 2010Q4

REPORT INFORMATION
  Report Type: 
  Country: None (occurrence: None)
  Receive Date: 20101216
  Receipt Date: 20101203
  Transmission Date: 20110411
  Serious: Yes (Death, Hospitalization)
  Sender: FDA-Public Use
  Company Number: US-MYLANLABS-2010S1020965

PATIENT
  Age: 30 Year
  Sex: Female

DRUGS (2)
  1. BROMISOVAL [Suspect]
     Indication: COMPLETED SUICIDE
     Route: 065
  2. LORAZEPAM [Suspect]
     Indication: COMPLETED SUICIDE
     Route: 065

REACTIONS (3)
  - CARDIO-RESPIRATORY ARREST [None]
  - COMPLETED SUICIDE [None]
  - LOSS OF CONSCIOUSNESS [None]
